FAERS Safety Report 24146419 (Version 1)
Quarter: 2024Q3

REPORT INFORMATION
  Report Type: Spontaneous
  Country: US (occurrence: US)
  Receive Date: 20240729
  Receipt Date: 20240729
  Transmission Date: 20241016
  Serious: No
  Sender: Haleon PLC
  Company Number: US-HALEON-2189098

PATIENT

DRUGS (2)
  1. ADVIL LIQUI-GELS [Suspect]
     Active Substance: IBUPROFEN
     Indication: Product used for unknown indication
     Dosage: EXPDATE:20260930
  2. ADVIL LIQUI-GELS [Suspect]
     Active Substance: IBUPROFEN

REACTIONS (2)
  - Poor quality product administered [Unknown]
  - Product complaint [Unknown]
